FAERS Safety Report 10928431 (Version 1)
Quarter: 2015Q1

REPORT INFORMATION
  Report Type: Spontaneous
  Country: US (occurrence: None)
  Receive Date: 20150317
  Receipt Date: 20150317
  Transmission Date: 20150721
  Serious: Yes (Hospitalization)
  Sender: FDA-Public Use
  Company Number: None

PATIENT
  Age: 71 Year
  Sex: Male
  Weight: 94.9 kg

DRUGS (1)
  1. MOXIFLOXACIN [Suspect]
     Active Substance: MOXIFLOXACIN
     Indication: UPPER RESPIRATORY TRACT INFECTION
     Dosage: MG
     Route: 048
     Dates: start: 20141017, end: 20141019

REACTIONS (1)
  - Angioedema [None]

NARRATIVE: CASE EVENT DATE: 20141018
